FAERS Safety Report 16941998 (Version 1)
Quarter: 2019Q4

REPORT INFORMATION
  Report Type: Report from Study
  Country: US (occurrence: US)
  Receive Date: 20191021
  Receipt Date: 20191021
  Transmission Date: 20200122
  Serious: Yes (Death)
  Sender: FDA-Public Use
  Company Number: US-PFIZER INC-2019395019

PATIENT
  Age: 64 Year
  Sex: Male

DRUGS (1)
  1. SUTENT [Suspect]
     Active Substance: SUNITINIB MALATE
     Indication: RENAL CELL CARCINOMA
     Dosage: 25 MG, CYCLIC(EVERY DAY FOR 4 WEEKS ON, 2 WEEKS OFF.)
     Route: 048
     Dates: start: 20190827, end: 201910

REACTIONS (5)
  - Death [Fatal]
  - Neoplasm progression [Unknown]
  - Gait disturbance [Not Recovered/Not Resolved]
  - Back pain [Unknown]
  - Sensory loss [Unknown]

NARRATIVE: CASE EVENT DATE: 20190908
